FAERS Safety Report 23886177 (Version 1)
Quarter: 2024Q2

REPORT INFORMATION
  Report Type: Spontaneous
  Country: US (occurrence: US)
  Receive Date: 20240522
  Receipt Date: 20240522
  Transmission Date: 20240716
  Serious: Yes (Other)
  Sender: FDA-Public Use
  Company Number: US-SA-2024SA149979

PATIENT
  Age: 45 Year
  Sex: Female

DRUGS (4)
  1. RIFAMPIN [Suspect]
     Active Substance: RIFAMPIN
     Indication: Latent tuberculosis
  2. ISONIAZID [Concomitant]
     Active Substance: ISONIAZID
     Indication: Latent tuberculosis
  3. PYRAZINAMIDE [Concomitant]
     Active Substance: PYRAZINAMIDE
     Indication: Latent tuberculosis
  4. ETHAMBUTOL [Concomitant]
     Active Substance: ETHAMBUTOL HYDROCHLORIDE
     Indication: Latent tuberculosis

REACTIONS (6)
  - Focal segmental glomerulosclerosis [Unknown]
  - Tubulointerstitial nephritis [Unknown]
  - Glomerulonephritis minimal lesion [Unknown]
  - Proteinuria [Unknown]
  - Anaphylactic reaction [Unknown]
  - Dyspnoea [Unknown]
